FAERS Safety Report 6207131-4 (Version None)
Quarter: 2009Q2

REPORT INFORMATION
  Report Type: 
  Country: None (occurrence: None)
  Receive Date: 20090528
  Receipt Date: 20090119
  Transmission Date: 20091009
  Serious: Yes (Hospitalization)
  Sender: FDA-Public Use
  Company Number: FR-PFIZER INC-2009159003

PATIENT
  Sex: Male

DRUGS (3)
  1. SOLU-MEDROL [Suspect]
     Indication: PREMEDICATION
     Dosage: FREQUENCY: CYCLIC,
     Route: 042
  2. CETUXIMAB [Suspect]
     Indication: TONGUE NEOPLASM MALIGNANT STAGE UNSPECIFIED
     Route: 042
     Dates: start: 20081217, end: 20081217
  3. DEXCHLORPHENIRAMINE MALEATE [Suspect]
     Indication: PREMEDICATION
     Dosage: FREQUENCY: CYCLIC,
     Route: 042

REACTIONS (7)
  - CHEST PAIN [None]
  - HYPERCAPNIA [None]
  - INFUSION SITE ERYTHEMA [None]
  - INFUSION SITE URTICARIA [None]
  - OXYGEN SATURATION DECREASED [None]
  - PO2 DECREASED [None]
  - URTICARIA [None]
